FAERS Safety Report 8156096-7 (Version None)
Quarter: 2012Q1

REPORT INFORMATION
  Report Type: 
  Country: None (occurrence: None)
  Receive Date: 20120222
  Receipt Date: 20120220
  Transmission Date: 20120608
  Serious: Yes (Other)
  Sender: FDA-Public Use
  Company Number: JP-PFIZER INC-2012044095

PATIENT
  Age: 72 Year
  Sex: Female

DRUGS (4)
  1. CONIEL [Concomitant]
     Dosage: UNK, AS NEEDED
     Route: 048
  2. ALDACTONE [Suspect]
     Dosage: 25 MG, 3X/DAY
     Route: 048
  3. CADUET [Suspect]
     Dosage: UNK, 1X/DAY
     Route: 048
     Dates: start: 20110101
  4. CARVEDILOL [Concomitant]
     Dosage: UNK
     Route: 048

REACTIONS (1)
  - HYPOKALAEMIA [None]
